FAERS Safety Report 5508486-6 (Version None)
Quarter: 2007Q4

REPORT INFORMATION
  Report Type: 
  Country: None (occurrence: None)
  Receive Date: 20071105
  Receipt Date: 20071025
  Transmission Date: 20080405
  Serious: Yes (Other)
  Sender: FDA-Public Use
  Company Number: 2007-500

PATIENT
  Age: 30 Year
  Sex: Female

DRUGS (1)
  1. HIBICLENS [Suspect]
     Indication: ANTIBIOTIC PROPHYLAXIS
     Dosage: TOPICAL 060
     Route: 061
     Dates: start: 20071025

REACTIONS (2)
  - ACCIDENTAL EXPOSURE [None]
  - INCORRECT ROUTE OF DRUG ADMINISTRATION [None]
